FAERS Safety Report 11160723 (Version 1)
Quarter: 2015Q2

REPORT INFORMATION
  Report Type: Spontaneous
  Country: US (occurrence: US)
  Receive Date: 20150604
  Receipt Date: 20150604
  Transmission Date: 20150821
  Serious: No
  Sender: FDA-Public Use
  Company Number: US-SA-2014SA068332

PATIENT
  Age: 78 Year
  Sex: Female
  Weight: 81.7 kg

DRUGS (3)
  1. LANTUS [Suspect]
     Active Substance: INSULIN GLARGINE
     Indication: DIABETES MELLITUS
     Dosage: 4-20 UNITS SLIDING SCALE
     Route: 065
     Dates: start: 20140210, end: 20140321
  2. LASIX [Concomitant]
     Active Substance: FUROSEMIDE
     Dates: start: 20140103
  3. FISH OIL [Concomitant]
     Active Substance: FISH OIL
     Dates: start: 20130926

REACTIONS (2)
  - Anxiety [Recovered/Resolved]
  - Confusional state [Recovered/Resolved]
